FAERS Safety Report 4690687-0 (Version None)
Quarter: 2005Q2

REPORT INFORMATION
  Report Type: 
  Country: None (occurrence: None)
  Receive Date: 20050615
  Receipt Date: 20050603
  Transmission Date: 20051028
  Serious: Yes (Hospitalization)
  Sender: FDA-Public Use
  Company Number: FR-BRISTOL-MYERS SQUIBB COMPANY-12993465

PATIENT
  Age: 73 Year
  Sex: Female

DRUGS (13)
  1. VASTEN [Suspect]
     Indication: HYPERLIPIDAEMIA
     Route: 048
     Dates: start: 20050113, end: 20050216
  2. OFLOCET [Suspect]
     Indication: LUNG INFECTION
     Route: 042
     Dates: start: 20050212, end: 20050220
  3. AUGMENTIN '125' [Suspect]
     Indication: LUNG INFECTION
     Route: 042
     Dates: start: 20050212, end: 20050220
  4. KARDEGIC [Concomitant]
     Indication: CARDIAC DISORDER
     Route: 048
  5. LOVENOX [Concomitant]
     Route: 058
     Dates: start: 20050212
  6. XANAX [Concomitant]
     Route: 048
     Dates: start: 20050213
  7. VASTAREL [Concomitant]
     Route: 048
  8. NITRODERM [Concomitant]
  9. OXAZEPAM [Concomitant]
     Route: 048
  10. TERCIAN [Concomitant]
  11. ANAFRANIL [Concomitant]
     Indication: BIPOLAR I DISORDER
     Route: 048
     Dates: end: 20050211
  12. ZYPREXA [Concomitant]
     Indication: BIPOLAR I DISORDER
     Route: 048
     Dates: end: 20050211
  13. TRANXENE [Concomitant]
     Indication: BIPOLAR I DISORDER
     Route: 048
     Dates: end: 20050211

REACTIONS (7)
  - ALANINE AMINOTRANSFERASE INCREASED [None]
  - ASPARTATE AMINOTRANSFERASE INCREASED [None]
  - BLOOD ALKALINE PHOSPHATASE INCREASED [None]
  - GAMMA-GLUTAMYLTRANSFERASE INCREASED [None]
  - PNEUMONIA KLEBSIELLA [None]
  - THROMBOCYTHAEMIA [None]
  - URINARY TRACT INFECTION BACTERIAL [None]
